FAERS Safety Report 4324808-6 (Version None)
Quarter: 2004Q1

REPORT INFORMATION
  Report Type: 
  Country: None (occurrence: None)
  Receive Date: 20040326
  Receipt Date: 20040316
  Transmission Date: 20041129
  Serious: Yes (Hospitalization)
  Sender: FDA-Public Use
  Company Number: FR-GLAXOSMITHKLINE-B0327181A

PATIENT
  Age: 82 Year
  Sex: Male
  Weight: 75 kg

DRUGS (2)
  1. DEROXAT [Suspect]
     Route: 048
     Dates: start: 20031127, end: 20031128
  2. ANDROCUR [Suspect]
     Route: 048
     Dates: start: 20030615, end: 20031128

REACTIONS (4)
  - CONFUSIONAL STATE [None]
  - EYE DISORDER [None]
  - GRAND MAL CONVULSION [None]
  - LOSS OF CONSCIOUSNESS [None]
